FAERS Safety Report 9242250 (Version 2)
Quarter: 2013Q2

REPORT INFORMATION
  Report Type: Report from Study
  Country: BE (occurrence: BE)
  Receive Date: 20130419
  Receipt Date: 20130425
  Transmission Date: 20140414
  Serious: Yes (Hospitalization)
  Sender: FDA-Public Use
  Company Number: PHHO2013BE005212

PATIENT
  Age: 51 Year
  Sex: Female
  Weight: 67 kg

DRUGS (12)
  1. EPIRUBICIN [Suspect]
  2. AFINITOR [Suspect]
     Indication: BREAST CANCER METASTATIC
     Dosage: 10 MG, QD
     Route: 048
     Dates: start: 20130213
  3. EXEMESTANE [Suspect]
     Indication: BREAST CANCER METASTATIC
     Dosage: 25 MG, QD
     Route: 048
     Dates: start: 20130213
  4. 5 FLUORO URACIL [Suspect]
  5. CYCLOPHOSPHAMIDE [Suspect]
  6. CYMBALTA [Concomitant]
     Dosage: 30 MG, QD
     Route: 048
  7. PAROXETINE [Concomitant]
     Dosage: 20 MG, QD
     Route: 048
  8. RISPERDAL [Concomitant]
     Dosage: 1 MG, QD
     Route: 048
  9. PANTOMED//DEXPANTHENOL [Concomitant]
  10. ANTABUSE [Concomitant]
     Dosage: 400 MG, QD
     Route: 048
  11. SIFROL [Concomitant]
     Dosage: 0.18 MG, TID
     Route: 048
  12. ZOCOR [Concomitant]
     Dosage: 20 MG, QD
     Route: 048

REACTIONS (4)
  - General physical health deterioration [Recovered/Resolved]
  - Anaemia [Recovered/Resolved]
  - Hyponatraemia [Recovered/Resolved]
  - Hypokalaemia [Recovered/Resolved]
